FAERS Safety Report 16130044 (Version 1)
Quarter: 2019Q1

REPORT INFORMATION
  Report Type: Spontaneous
  Country: US (occurrence: US)
  Receive Date: 20190328
  Receipt Date: 20190328
  Transmission Date: 20190418
  Serious: No
  Sender: FDA-Public Use
  Company Number: US-INDIVIOR LIMITED-INDV-115579-2018

PATIENT
  Age: 36 Year
  Sex: Male

DRUGS (1)
  1. SUBLOCADE [Suspect]
     Active Substance: BUPRENORPHINE
     Indication: PRODUCT USED FOR UNKNOWN INDICATION
     Dosage: 100 MG, QMO
     Route: 065
     Dates: start: 2018

REACTIONS (1)
  - Product dispensing issue [Recovered/Resolved]

NARRATIVE: CASE EVENT DATE: 20181105
